FAERS Safety Report 4830305-1 (Version None)
Quarter: 2005Q4

REPORT INFORMATION
  Report Type: 
  Country: None (occurrence: None)
  Receive Date: 20051117
  Receipt Date: 20051109
  Transmission Date: 20060501
  Serious: Yes (Hospitalization, Other)
  Sender: FDA-Public Use
  Company Number: GB-JNJFOC-20051102687

PATIENT
  Sex: Male
  Weight: 85 kg

DRUGS (9)
  1. REMICADE [Suspect]
     Indication: RHEUMATOID ARTHRITIS
     Route: 042
  2. METHOTREXATE [Concomitant]
     Route: 065
  3. PREDNISOLONE [Concomitant]
     Route: 065
  4. ADIZEM [Concomitant]
     Route: 065
  5. CO-AMILOFRUSE [Concomitant]
     Route: 065
  6. CO-AMILOFRUSE [Concomitant]
     Route: 065
  7. DIGOXIN [Concomitant]
     Route: 065
  8. DOXAZOSIN [Concomitant]
     Route: 065
  9. SOTALOL [Concomitant]
     Route: 065

REACTIONS (1)
  - ATRIAL FIBRILLATION [None]
